FAERS Safety Report 8456703-5 (Version None)
Quarter: 2012Q2

REPORT INFORMATION
  Report Type: 
  Country: None (occurrence: None)
  Receive Date: 20120621
  Receipt Date: 20120613
  Transmission Date: 20120825
  Serious: Yes (Death, Life-Threatening)
  Sender: FDA-Public Use
  Company Number: JP-EISAI INC-E7389-01961-CLI-JP

PATIENT
  Sex: Female
  Weight: 63 kg

DRUGS (12)
  1. ZOLPIDEM [Concomitant]
     Indication: PROPHYLAXIS
     Route: 048
  2. GRANISETRON [Concomitant]
     Indication: PROPHYLAXIS
     Route: 041
  3. HALAVEN [Suspect]
     Route: 041
     Dates: start: 20111025, end: 20111202
  4. LEUCON [Concomitant]
     Indication: PROPHYLAXIS
     Route: 048
  5. FLOMOX [Concomitant]
     Indication: PROPHYLAXIS
     Route: 048
  6. LAXOBERON [Concomitant]
     Indication: PROPHYLAXIS
     Route: 048
  7. OXYCONTIN [Concomitant]
     Indication: PAIN
     Route: 048
  8. LASIX [Concomitant]
     Indication: PROPHYLAXIS
     Route: 041
  9. OXYCODONE HYDROCHLORIDE [Concomitant]
     Indication: PAIN
     Route: 048
  10. HALAVEN [Suspect]
     Indication: METASTASES TO OVARY
  11. CEPHARANTHINE [Concomitant]
     Indication: PROPHYLAXIS
     Route: 048
  12. MUCOSTA [Concomitant]
     Indication: PROPHYLAXIS
     Route: 048

REACTIONS (2)
  - NEUTROPHILIA [None]
  - RESPIRATORY FAILURE [None]
